FAERS Safety Report 13554034 (Version 1)
Quarter: 2017Q2

REPORT INFORMATION
  Report Type: Report from Study
  Country: JP (occurrence: JP)
  Receive Date: 20170517
  Receipt Date: 20170517
  Transmission Date: 20170830
  Serious: Yes (Hospitalization)
  Sender: FDA-Public Use
  Company Number: JP-ACTELION-A-CH2017-153876

PATIENT
  Age: 73 Year
  Sex: Female

DRUGS (21)
  1. NU-LOTAN [Concomitant]
     Active Substance: LOSARTAN POTASSIUM
  2. MALFA [Concomitant]
     Active Substance: ALUMINUM HYDROXIDE\MAGNESIUM HYDROXIDE
  3. TRACLEER [Suspect]
     Active Substance: BOSENTAN
     Indication: SCLERODERMA ASSOCIATED DIGITAL ULCER
     Dosage: 125 MG, BID
     Route: 048
     Dates: start: 20150915, end: 20160503
  4. LULICON [Concomitant]
     Active Substance: LULICONAZOLE
  5. NEXIUM [Concomitant]
     Active Substance: ESOMEPRAZOLE MAGNESIUM
  6. DORNER [Concomitant]
     Active Substance: BERAPROST SODIUM
  7. FIBLAST [Concomitant]
  8. FERROUS SULFATE. [Concomitant]
     Active Substance: FERROUS SULFATE
  9. COLONEL [Concomitant]
     Active Substance: CALCIUM POLYCARBOPHIL
  10. ADEMPAS [Concomitant]
     Active Substance: RIOCIGUAT
  11. TRACLEER [Suspect]
     Active Substance: BOSENTAN
     Dosage: 125 MG, BID
     Route: 048
     Dates: start: 20160510
  12. PREDNISOLONE. [Concomitant]
     Active Substance: PREDNISOLONE
  13. GASMOTIN [Concomitant]
     Active Substance: MOSAPRIDE CITRATE
  14. FLUITRAN [Concomitant]
     Active Substance: TRICHLORMETHIAZIDE
  15. ARTIST [Concomitant]
     Active Substance: CARVEDILOL
  16. ACTONEL [Concomitant]
     Active Substance: RISEDRONATE SODIUM
  17. LOXONIN [Concomitant]
     Active Substance: LOXOPROFEN SODIUM
  18. TAKECAB [Concomitant]
     Active Substance: VONOPRAZAN FUMURATE
  19. PROSTANDIN [Concomitant]
  20. PREDONINE [Concomitant]
     Active Substance: PREDNISOLONE
  21. BONALON [Concomitant]
     Active Substance: ALENDRONATE SODIUM

REACTIONS (3)
  - Vomiting [Recovered/Resolved]
  - Ileus paralytic [Recovered/Resolved]
  - Diarrhoea [Recovered/Resolved]

NARRATIVE: CASE EVENT DATE: 20160501
